FAERS Safety Report 4574546-X (Version None)
Quarter: 2005Q1

REPORT INFORMATION
  Report Type: 
  Country: None (occurrence: None)
  Receive Date: 20050204
  Receipt Date: 20050121
  Transmission Date: 20050727
  Serious: Yes (Other)
  Sender: FDA-Public Use
  Company Number: 2005018072

PATIENT
  Age: 26 Year
  Sex: Female
  Weight: 51.2565 kg

DRUGS (3)
  1. GEODON [Suspect]
     Indication: PSYCHOTIC DISORDER
     Dosage: 100 MG (1 IN 1 D), ORAL
     Route: 048
  2. VALPROATE SODIUM [Concomitant]
  3. TOPIRAMATE [Concomitant]

REACTIONS (14)
  - AMENORRHOEA [None]
  - CONVULSION [None]
  - DRUG INEFFECTIVE [None]
  - DYSKINESIA [None]
  - FATIGUE [None]
  - HYPOTHALAMO-PITUITARY DISORDERS [None]
  - MENSTRUATION IRREGULAR [None]
  - MOVEMENT DISORDER [None]
  - MUSCLE SPASMS [None]
  - MUSCULOSKELETAL STIFFNESS [None]
  - ROAD TRAFFIC ACCIDENT [None]
  - SOMNOLENCE [None]
  - THYROID MASS [None]
  - TREMOR [None]
